FAERS Safety Report 11577437 (Version 2)
Quarter: 2016Q1

REPORT INFORMATION
  Report Type: Spontaneous
  Country: US (occurrence: US)
  Receive Date: 20150930
  Receipt Date: 20160106
  Transmission Date: 20160525
  Serious: No
  Sender: FDA-Public Use
  Company Number: US-TEVA-597621USA

PATIENT

DRUGS (13)
  1. GABAPENTIN. [Concomitant]
     Active Substance: GABAPENTIN
  2. ASPIRIN. [Concomitant]
     Active Substance: ASPIRIN
  3. BUPROPION. [Concomitant]
     Active Substance: BUPROPION
  4. PROPANOLOL [Concomitant]
     Active Substance: PROPRANOLOL HYDROCHLORIDE
  5. TROSPIUM [Concomitant]
     Active Substance: TROSPIUM
  6. LEVOTHROID [Concomitant]
     Active Substance: LEVOTHYROXINE SODIUM
  7. SERTRALINE [Concomitant]
     Active Substance: SERTRALINE HYDROCHLORIDE
  8. VITAMIN D3 [Concomitant]
     Active Substance: CHOLECALCIFEROL
  9. TIMOLOL. [Concomitant]
     Active Substance: TIMOLOL
  10. COPAXONE [Suspect]
     Active Substance: GLATIRAMER ACETATE
     Indication: PRODUCT USED FOR UNKNOWN INDICATION
     Dosage: DOSE AND FREQUENCY NOT PROVIDED
     Route: 065
  11. LITHIUM. [Concomitant]
     Active Substance: LITHIUM
  12. TAMSULOSIN [Concomitant]
     Active Substance: TAMSULOSIN
  13. FLUOCINONIDE. [Concomitant]
     Active Substance: FLUOCINONIDE

REACTIONS (4)
  - Gait disturbance [Unknown]
  - Migraine [Unknown]
  - Rib fracture [Unknown]
  - Fall [Unknown]
